FAERS Safety Report 9781032 (Version 2)
Quarter: 2014Q1

REPORT INFORMATION
  Report Type: Spontaneous
  Country: DE (occurrence: DE)
  Receive Date: 20131224
  Receipt Date: 20140123
  Transmission Date: 20141002
  Serious: Yes (Other)
  Sender: FDA-Public Use
  Company Number: PHHY2013DE150110

PATIENT
  Age: 69 Year
  Sex: Male
  Weight: 86 kg

DRUGS (12)
  1. JAKAVI [Suspect]
     Indication: MYELOFIBROSIS
     Dosage: 5 MG, UNK
     Route: 048
     Dates: start: 20131015
  2. JAKAVI [Suspect]
     Dosage: 10 MG, QD (1 TABLET IN MORNING AND 1 TABLET IN EVENING)
  3. MARCUMAR [Suspect]
     Indication: ARRHYTHMIA
     Dosage: 1 TABLET PER DAY
     Route: 048
     Dates: start: 2005
  4. MARCUMAR [Suspect]
     Indication: DEEP VEIN THROMBOSIS
  5. EXJADE [Concomitant]
     Indication: IRON OVERLOAD
     Dosage: 750 MG, QD
     Route: 048
     Dates: start: 2012
  6. EXJADE [Concomitant]
     Dosage: 250 MG, BID (1 TABLET IN MORNING AND 1 TABLET IN EVENING)
     Dates: start: 201308
  7. METOPROLOL [Concomitant]
     Indication: HYPERTENSION
     Dosage: 1 DF, IN MORNING
     Dates: start: 2000
  8. ALLOPURINOL [Concomitant]
     Dosage: 1 DF, IN THE MORNING
  9. VALSACOR [Concomitant]
     Indication: HYPERTENSION
     Dosage: 0.5 DF, IN EVENING
     Dates: start: 2005
  10. HYLO-COMOD [Concomitant]
     Dosage: UNK UKN, A FEW TIMES A DAY
  11. HCT BETA [Concomitant]
     Indication: HYPERTENSION
     Dosage: 0.5 DF, IF NECESSARY
     Dates: start: 2002
  12. EUPHORBIUM COMP [Concomitant]
     Dosage: A FEW TIMES A DAY

REACTIONS (8)
  - Pericardial effusion [Recovering/Resolving]
  - Haemorrhagic diathesis [Not Recovered/Not Resolved]
  - Conjunctival haemorrhage [Unknown]
  - Haemorrhage [Not Recovered/Not Resolved]
  - Pleural effusion [Recovered/Resolved]
  - Splenomegaly [Not Recovered/Not Resolved]
  - Thrombocytopenia [Not Recovered/Not Resolved]
  - Dyspnoea [Unknown]
